FAERS Safety Report 17162221 (Version 1)
Quarter: 2019Q4

REPORT INFORMATION
  Report Type: Spontaneous
  Country: US (occurrence: US)
  Receive Date: 20191217
  Receipt Date: 20191217
  Transmission Date: 20200122
  Serious: No
  Sender: FDA-Public Use
  Company Number: US-009507513-1912USA003273

PATIENT
  Age: 22 Year
  Sex: Male

DRUGS (2)
  1. NOXAFIL [Suspect]
     Active Substance: POSACONAZOLE
     Dosage: UNK
     Route: 042
  2. NOXAFIL [Suspect]
     Active Substance: POSACONAZOLE
     Dosage: 9 WEEKS
     Route: 042

REACTIONS (1)
  - Product use in unapproved indication [Unknown]
